FAERS Safety Report 7361956-0 (Version None)
Quarter: 2011Q1

REPORT INFORMATION
  Report Type: 
  Country: None (occurrence: None)
  Receive Date: 20110318
  Receipt Date: 20110314
  Transmission Date: 20110831
  Serious: Yes (Death, Other)
  Sender: FDA-Public Use
  Company Number: PHHY2011GB20257

PATIENT
  Sex: Male

DRUGS (3)
  1. METHOTREXATE [Suspect]
     Indication: RHEUMATOID ARTHRITIS
     Dosage: UNK
     Dates: start: 20060301
  2. SULPHASALAZINE [Concomitant]
     Dosage: UNK
     Dates: start: 20050301
  3. ARAVA [Interacting]
     Indication: RHEUMATOID ARTHRITIS
     Dosage: UNK
     Dates: start: 20070901

REACTIONS (3)
  - RESPIRATORY FAILURE [None]
  - DRUG INTERACTION [None]
  - INTERSTITIAL LUNG DISEASE [None]
